FAERS Safety Report 4502371-4 (Version None)
Quarter: 2004Q4

REPORT INFORMATION
  Report Type: 
  Country: None (occurrence: None)
  Receive Date: 20041110
  Receipt Date: 20041028
  Transmission Date: 20050328
  Serious: Yes (Hospitalization, Other)
  Sender: FDA-Public Use
  Company Number: 2004051600

PATIENT
  Age: 42 Year
  Sex: Female

DRUGS (3)
  1. LIPITOR [Suspect]
     Indication: TYPE IIA HYPERLIPIDAEMIA
     Dosage: 20 MG (`20 MG, 1 IN 1 D), ORAL
     Route: 048
     Dates: start: 20040301, end: 20040701
  2. ATENOLOL [Concomitant]
  3. ACETYLSALICYLIC ACID [Concomitant]

REACTIONS (6)
  - CAROTID ARTERY DISEASE [None]
  - OEDEMA [None]
  - PARAESTHESIA [None]
  - SENSATION OF HEAVINESS [None]
  - TRANSIENT ISCHAEMIC ATTACK [None]
  - ULTRASOUND DOPPLER ABNORMAL [None]
